FAERS Safety Report 12881308 (Version 2)
Quarter: 2017Q2

REPORT INFORMATION
  Report Type: Spontaneous
  Country: US (occurrence: US)
  Receive Date: 20161025
  Receipt Date: 20170404
  Transmission Date: 20170830
  Serious: No
  Sender: FDA-Public Use
  Company Number: US-JNJFOC-20161003680

PATIENT
  Sex: Male

DRUGS (60)
  1. RISPERDAL [Suspect]
     Active Substance: RISPERIDONE
     Indication: AGGRESSION
     Route: 048
     Dates: start: 20060511, end: 20060622
  2. RISPERDAL [Suspect]
     Active Substance: RISPERIDONE
     Indication: AGGRESSION
     Route: 048
     Dates: end: 20140130
  3. RISPERDAL [Suspect]
     Active Substance: RISPERIDONE
     Indication: AGGRESSION
     Route: 048
     Dates: start: 20110719
  4. RISPERDAL [Suspect]
     Active Substance: RISPERIDONE
     Indication: AGITATION
     Route: 048
     Dates: start: 20100114, end: 20110617
  5. RISPERDAL [Suspect]
     Active Substance: RISPERIDONE
     Indication: SEVERE MENTAL RETARDATION
     Route: 048
     Dates: start: 20131129, end: 20131230
  6. RISPERDAL [Suspect]
     Active Substance: RISPERIDONE
     Indication: SEVERE MENTAL RETARDATION
     Route: 048
     Dates: start: 20070322, end: 20071105
  7. RISPERDAL [Suspect]
     Active Substance: RISPERIDONE
     Indication: AUTISM SPECTRUM DISORDER
     Route: 048
     Dates: start: 20081016
  8. RISPERDAL [Suspect]
     Active Substance: RISPERIDONE
     Indication: AUTISM SPECTRUM DISORDER
     Route: 048
     Dates: start: 20080822, end: 20091021
  9. RISPERDAL [Suspect]
     Active Substance: RISPERIDONE
     Indication: AUTISM SPECTRUM DISORDER
     Route: 048
     Dates: start: 20111112, end: 20120411
  10. RISPERDAL [Suspect]
     Active Substance: RISPERIDONE
     Indication: AGGRESSION
     Route: 048
     Dates: start: 20110916
  11. RISPERDAL [Suspect]
     Active Substance: RISPERIDONE
     Indication: AGGRESSION
     Route: 048
     Dates: start: 20110821
  12. RISPERDAL [Suspect]
     Active Substance: RISPERIDONE
     Indication: AGITATION
     Route: 048
     Dates: start: 20110916
  13. RISPERDAL [Suspect]
     Active Substance: RISPERIDONE
     Indication: AGITATION
     Route: 048
     Dates: start: 20111112, end: 20120411
  14. RISPERDAL [Suspect]
     Active Substance: RISPERIDONE
     Indication: SEVERE MENTAL RETARDATION
     Route: 048
     Dates: start: 20120719
  15. RISPERDAL [Suspect]
     Active Substance: RISPERIDONE
     Indication: SEVERE MENTAL RETARDATION
     Route: 048
     Dates: end: 20140130
  16. RISPERDAL [Suspect]
     Active Substance: RISPERIDONE
     Indication: AGGRESSION
     Route: 048
     Dates: start: 20120719
  17. RISPERDAL [Suspect]
     Active Substance: RISPERIDONE
     Indication: AGITATION
     Route: 048
     Dates: start: 20131129, end: 20131230
  18. RISPERDAL [Suspect]
     Active Substance: RISPERIDONE
     Indication: AUTISM SPECTRUM DISORDER
     Route: 048
     Dates: start: 20110821
  19. RISPERDAL [Suspect]
     Active Substance: RISPERIDONE
     Indication: AUTISM SPECTRUM DISORDER
     Route: 048
     Dates: start: 20060912, end: 20061210
  20. RISPERDAL [Suspect]
     Active Substance: RISPERIDONE
     Indication: AGGRESSION
     Route: 048
     Dates: start: 20111112, end: 20120411
  21. RISPERDAL [Suspect]
     Active Substance: RISPERIDONE
     Indication: AGGRESSION
     Route: 048
     Dates: start: 20060912, end: 20061210
  22. RISPERDAL [Suspect]
     Active Substance: RISPERIDONE
     Indication: SEVERE MENTAL RETARDATION
     Route: 048
     Dates: start: 20080822, end: 20091021
  23. RISPERDAL [Suspect]
     Active Substance: RISPERIDONE
     Indication: SEVERE MENTAL RETARDATION
     Route: 048
     Dates: start: 20111112, end: 20120411
  24. RISPERDAL [Suspect]
     Active Substance: RISPERIDONE
     Indication: SEVERE MENTAL RETARDATION
     Route: 048
     Dates: start: 20060912, end: 20061210
  25. RISPERDAL [Suspect]
     Active Substance: RISPERIDONE
     Indication: AUTISM SPECTRUM DISORDER
     Route: 048
     Dates: start: 20060511, end: 20060622
  26. RISPERDAL [Suspect]
     Active Substance: RISPERIDONE
     Indication: AUTISM SPECTRUM DISORDER
     Route: 048
     Dates: start: 20070322, end: 20071105
  27. RISPERDAL [Suspect]
     Active Substance: RISPERIDONE
     Indication: AGGRESSION
     Route: 048
     Dates: start: 20100114, end: 20110617
  28. RISPERDAL [Suspect]
     Active Substance: RISPERIDONE
     Indication: AGITATION
     Route: 048
     Dates: start: 20120719
  29. RISPERDAL [Suspect]
     Active Substance: RISPERIDONE
     Indication: AGITATION
     Route: 048
     Dates: start: 20110821
  30. RISPERDAL [Suspect]
     Active Substance: RISPERIDONE
     Indication: AGITATION
     Route: 048
     Dates: start: 20121011, end: 20130709
  31. RISPERDAL [Suspect]
     Active Substance: RISPERIDONE
     Indication: SEVERE MENTAL RETARDATION
     Route: 048
     Dates: start: 20121011, end: 20130709
  32. RISPERDAL [Suspect]
     Active Substance: RISPERIDONE
     Indication: SEVERE MENTAL RETARDATION
     Route: 048
     Dates: start: 20110821
  33. RISPERDAL [Suspect]
     Active Substance: RISPERIDONE
     Indication: SEVERE MENTAL RETARDATION
     Route: 048
     Dates: start: 20110916
  34. RISPERDAL [Suspect]
     Active Substance: RISPERIDONE
     Indication: SEVERE MENTAL RETARDATION
     Route: 048
     Dates: start: 20060116, end: 20060223
  35. RISPERDAL [Suspect]
     Active Substance: RISPERIDONE
     Indication: AUTISM SPECTRUM DISORDER
     Route: 048
     Dates: end: 20140130
  36. RISPERDAL [Suspect]
     Active Substance: RISPERIDONE
     Indication: AUTISM SPECTRUM DISORDER
     Route: 048
     Dates: start: 20110916
  37. RISPERDAL [Suspect]
     Active Substance: RISPERIDONE
     Indication: AUTISM SPECTRUM DISORDER
     Route: 048
     Dates: start: 20121011, end: 20130709
  38. RISPERDAL [Suspect]
     Active Substance: RISPERIDONE
     Indication: AUTISM SPECTRUM DISORDER
     Route: 048
     Dates: start: 20131129, end: 20131230
  39. RISPERDAL [Suspect]
     Active Substance: RISPERIDONE
     Indication: AGGRESSION
     Route: 048
     Dates: start: 20070322, end: 20071105
  40. RISPERDAL [Suspect]
     Active Substance: RISPERIDONE
     Indication: AGGRESSION
     Route: 048
     Dates: start: 20121011, end: 20130709
  41. RISPERDAL [Suspect]
     Active Substance: RISPERIDONE
     Indication: AGGRESSION
     Route: 048
     Dates: start: 20060116, end: 20060223
  42. RISPERDAL [Suspect]
     Active Substance: RISPERIDONE
     Indication: AGITATION
     Route: 048
     Dates: start: 20070322, end: 20071105
  43. RISPERDAL [Suspect]
     Active Substance: RISPERIDONE
     Indication: AGITATION
     Route: 048
     Dates: start: 20060116, end: 20060223
  44. RISPERDAL [Suspect]
     Active Substance: RISPERIDONE
     Indication: SEVERE MENTAL RETARDATION
     Route: 048
     Dates: start: 20110719
  45. RISPERDAL [Suspect]
     Active Substance: RISPERIDONE
     Indication: SEVERE MENTAL RETARDATION
     Route: 048
     Dates: start: 20060511, end: 20060622
  46. RISPERDAL [Suspect]
     Active Substance: RISPERIDONE
     Indication: AUTISM SPECTRUM DISORDER
     Route: 048
     Dates: start: 20100114, end: 20110617
  47. RISPERDAL [Suspect]
     Active Substance: RISPERIDONE
     Indication: AUTISM SPECTRUM DISORDER
     Route: 048
     Dates: start: 20060116, end: 20060223
  48. RISPERDAL [Suspect]
     Active Substance: RISPERIDONE
     Indication: AGGRESSION
     Route: 048
     Dates: start: 20131129, end: 20131230
  49. RISPERDAL [Suspect]
     Active Substance: RISPERIDONE
     Indication: AGGRESSION
     Route: 048
     Dates: start: 20080822, end: 20091021
  50. RISPERDAL [Suspect]
     Active Substance: RISPERIDONE
     Indication: AGITATION
     Route: 048
     Dates: start: 20060912, end: 20061210
  51. RISPERDAL [Suspect]
     Active Substance: RISPERIDONE
     Indication: AGITATION
     Route: 048
     Dates: start: 20060511, end: 20060622
  52. RISPERDAL [Suspect]
     Active Substance: RISPERIDONE
     Indication: SEVERE MENTAL RETARDATION
     Route: 048
     Dates: start: 20081016
  53. RISPERDAL [Suspect]
     Active Substance: RISPERIDONE
     Indication: AUTISM SPECTRUM DISORDER
     Route: 048
     Dates: start: 20110719
  54. RISPERDAL [Suspect]
     Active Substance: RISPERIDONE
     Indication: AGGRESSION
     Route: 048
     Dates: start: 20081016
  55. RISPERDAL [Suspect]
     Active Substance: RISPERIDONE
     Indication: AGITATION
     Route: 048
     Dates: end: 20140130
  56. RISPERDAL [Suspect]
     Active Substance: RISPERIDONE
     Indication: AGITATION
     Route: 048
     Dates: start: 20110719
  57. RISPERDAL [Suspect]
     Active Substance: RISPERIDONE
     Indication: AGITATION
     Route: 048
     Dates: start: 20081016
  58. RISPERDAL [Suspect]
     Active Substance: RISPERIDONE
     Indication: AGITATION
     Route: 048
     Dates: start: 20080822, end: 20091021
  59. RISPERDAL [Suspect]
     Active Substance: RISPERIDONE
     Indication: SEVERE MENTAL RETARDATION
     Route: 048
     Dates: start: 20100114, end: 20110617
  60. RISPERDAL [Suspect]
     Active Substance: RISPERIDONE
     Indication: AUTISM SPECTRUM DISORDER
     Route: 048
     Dates: start: 20120719

REACTIONS (1)
  - Gynaecomastia [Unknown]

NARRATIVE: CASE EVENT DATE: 2007
